FAERS Safety Report 5102363-0 (Version None)
Quarter: 2006Q3

REPORT INFORMATION
  Report Type: 
  Country: None (occurrence: None)
  Receive Date: 20060912
  Receipt Date: 20060626
  Transmission Date: 20061208
  Serious: No
  Sender: FDA-Public Use
  Company Number: US-GLAXOSMITHKLINE-A0610342A

PATIENT
  Age: 49 Year
  Sex: Female

DRUGS (3)
  1. FLOVENT [Suspect]
     Indication: ASTHMA
     Dosage: 2PUFF TWICE PER DAY
     Route: 055
     Dates: start: 20060606, end: 20060609
  2. ALBUTEROL [Concomitant]
  3. THYROID TAB [Concomitant]

REACTIONS (5)
  - DRY THROAT [None]
  - DYSPNOEA [None]
  - HEADACHE [None]
  - LARYNGITIS [None]
  - PHARYNGOLARYNGEAL PAIN [None]
